FAERS Safety Report 5047573-6 (Version None)
Quarter: 2006Q3

REPORT INFORMATION
  Report Type: 
  Country: None (occurrence: None)
  Receive Date: 20060711
  Receipt Date: 20041018
  Transmission Date: 20061208
  Serious: Yes (Other)
  Sender: FDA-Public Use
  Company Number: PHFR2004GB03896

PATIENT
  Age: 50 Year
  Sex: Male

DRUGS (1)
  1. CLOZARIL [Suspect]
     Indication: SCHIZOPHRENIA
     Dosage: 400MG/DAY
     Dates: start: 19980910

REACTIONS (9)
  - CONSTIPATION [None]
  - DIARRHOEA [None]
  - ENDOSCOPY [None]
  - EOSINOPHIL COUNT DECREASED [None]
  - HERNIA [None]
  - INTESTINAL FUNCTIONAL DISORDER [None]
  - PLATELET COUNT DECREASED [None]
  - PROSTATE EXAMINATION ABNORMAL [None]
  - SIGMOIDOSCOPY [None]
